FAERS Safety Report 9167135 (Version 2)
Quarter: 2013Q2

REPORT INFORMATION
  Report Type: Spontaneous
  Country: US (occurrence: US)
  Receive Date: 20130318
  Receipt Date: 20130404
  Transmission Date: 20140414
  Serious: Yes (Hospitalization, Other)
  Sender: FDA-Public Use
  Company Number: US-BIOGENIDEC-2013BI023291

PATIENT
  Age: 57 Year
  Sex: Female

DRUGS (1)
  1. TYSABRI [Suspect]
     Indication: MULTIPLE SCLEROSIS
     Route: 042
     Dates: start: 20090601

REACTIONS (6)
  - Myocardial infarction [Recovered/Resolved]
  - Bacteraemia [Not Recovered/Not Resolved]
  - Influenza [Unknown]
  - Intervertebral disc compression [Not Recovered/Not Resolved]
  - Amniotic band syndrome [Recovered/Resolved]
  - Asymptomatic bacteriuria [Unknown]
